FAERS Safety Report 13377737 (Version 1)
Quarter: 2017Q1

REPORT INFORMATION
  Report Type: Spontaneous
  Country: US (occurrence: US)
  Receive Date: 20170328
  Receipt Date: 20170328
  Transmission Date: 20170429
  Serious: No
  Sender: FDA-Public Use
  Company Number: US-AMNEAL PHARMACEUTICALS-2016AMN00721

PATIENT
  Age: 47 Year
  Sex: Female
  Weight: 62.13 kg

DRUGS (3)
  1. OXYCODONE HYDROCHLORIDE. [Suspect]
     Active Substance: OXYCODONE HYDROCHLORIDE
     Indication: NECK PAIN
     Dosage: 15 MG, 5X/DAY
     Route: 048
     Dates: start: 201512, end: 20161215
  2. VALIUM [Concomitant]
     Active Substance: DIAZEPAM
     Dosage: UNK
  3. OLEPTRO [Concomitant]
     Active Substance: TRAZODONE HYDROCHLORIDE
     Dosage: UNK

REACTIONS (6)
  - Feeling abnormal [Recovered/Resolved]
  - Pruritus generalised [Recovered/Resolved]
  - Scar [Recovered/Resolved]
  - Rash generalised [Recovering/Resolving]
  - Depression [Recovered/Resolved]
  - Haemorrhagic urticaria [Recovered/Resolved]

NARRATIVE: CASE EVENT DATE: 201606
